FAERS Safety Report 11010547 (Version 1)
Quarter: 2015Q2

REPORT INFORMATION
  Report Type: Spontaneous
  Country: US (occurrence: US)
  Receive Date: 20150410
  Receipt Date: 20150410
  Transmission Date: 20150821
  Serious: Yes (Hospitalization)
  Sender: FDA-Public Use
  Company Number: US-ELI_LILLY_AND_COMPANY-US201504001617

PATIENT
  Age: 46 Year
  Sex: Female
  Weight: 81.63 kg

DRUGS (1)
  1. HUMALOG [Suspect]
     Active Substance: INSULIN LISPRO
     Indication: PRODUCT USED FOR UNKNOWN INDICATION
     Route: 058

REACTIONS (3)
  - Blood glucose decreased [Unknown]
  - Feeling abnormal [Unknown]
  - Cystitis [Unknown]

NARRATIVE: CASE EVENT DATE: 20150331
